FAERS Safety Report 12384055 (Version 1)
Quarter: 2016Q2

REPORT INFORMATION
  Report Type: Spontaneous
  Country: US (occurrence: None)
  Receive Date: 20160518
  Receipt Date: 20160518
  Transmission Date: 20160815
  Serious: No
  Sender: FDA-Public Use
  Company Number: None

PATIENT
  Age: 37 Year
  Sex: Female
  Weight: 56.25 kg

DRUGS (6)
  1. COCONUT OIL [Concomitant]
     Active Substance: COCONUT OIL
  2. BIOTIN [Concomitant]
     Active Substance: BIOTIN
  3. VITAMIN B12 [Concomitant]
     Active Substance: CYANOCOBALAMIN
  4. CLARITIN REDITABS [Concomitant]
     Active Substance: LORATADINE
  5. BOTOX [Suspect]
     Active Substance: ONABOTULINUMTOXINA
     Indication: SKIN COSMETIC PROCEDURE
     Dates: start: 20160513, end: 20160513
  6. PROBOTICS [Concomitant]

REACTIONS (4)
  - Anxiety [None]
  - Swelling [None]
  - Headache [None]
  - Eyelid ptosis [None]

NARRATIVE: CASE EVENT DATE: 20160513
